FAERS Safety Report 24118603 (Version 3)
Quarter: 2024Q3

REPORT INFORMATION
  Report Type: Spontaneous
  Country: US (occurrence: US)
  Receive Date: 20240722
  Receipt Date: 20240909
  Transmission Date: 20241017
  Serious: Yes (Other)
  Sender: PFIZER
  Company Number: US-PFIZER INC-PV202400092980

PATIENT
  Age: 81 Year
  Sex: Male

DRUGS (2)
  1. INLYTA [Suspect]
     Active Substance: AXITINIB
     Dosage: 2 MG, 2X/DAY (2 TABLETS X 2 DAILY)
  2. INLYTA [Suspect]
     Active Substance: AXITINIB
     Dosage: TAKE 3 TABLETS (3MG) BY MOUTH IN THE MORNING AND 2 TABLETS (2 MG) IN THE EVENING
     Route: 048

REACTIONS (2)
  - Dialysis [Unknown]
  - Off label use [Unknown]
